FAERS Safety Report 6998000-0 (Version None)
Quarter: 2010Q3

REPORT INFORMATION
  Report Type: 
  Country: None (occurrence: None)
  Receive Date: 20100920
  Receipt Date: 20070808
  Transmission Date: 20110219
  Serious: Yes (Hospitalization, Other)
  Sender: FDA-Public Use
  Company Number: US-ASTRAZENECA-2006UW12330

PATIENT
  Age: 16424 Day
  Sex: Male
  Weight: 105.7 kg

DRUGS (13)
  1. SEROQUEL [Suspect]
     Route: 048
     Dates: start: 20030628
  2. SEROQUEL [Suspect]
     Dosage: 200 MG - 400 MG
     Route: 048
     Dates: start: 20050323
  3. ZYPREXA [Suspect]
  4. ABILIFY [Concomitant]
  5. RISPERDAL [Concomitant]
     Dates: start: 20030318, end: 20040501
  6. GLUCOPHAGE [Concomitant]
     Route: 048
     Dates: start: 20030703
  7. RANITIDINE [Concomitant]
     Dates: start: 20030429
  8. ZOLOFT [Concomitant]
     Dates: start: 20050422
  9. ATENOLOL [Concomitant]
     Dates: start: 20050422
  10. LOTENSIN [Concomitant]
     Dosage: 10 MG - 20 MG
     Dates: start: 20030429
  11. LIPITOR [Concomitant]
     Dates: start: 20030429
  12. ASPIRIN [Concomitant]
     Dates: start: 20050422
  13. HYDROCODONE [Concomitant]
     Dates: start: 20050422

REACTIONS (3)
  - DIABETES MELLITUS [None]
  - PNEUMONIA [None]
  - TYPE 2 DIABETES MELLITUS [None]
